FAERS Safety Report 25795761 (Version 1)
Quarter: 2025Q3

REPORT INFORMATION
  Report Type: Report from Study
  Country: US (occurrence: US)
  Receive Date: 20250912
  Receipt Date: 20250912
  Transmission Date: 20251021
  Serious: Yes (Hospitalization)
  Sender: BAYER HEALTHCARE PHARMACEUTICALS INC.
  Company Number: US-BAYER-2025A120524

PATIENT
  Age: 57 Year
  Sex: Male

DRUGS (16)
  1. STIVARGA [Suspect]
     Active Substance: REGORAFENIB MONOHYDRATE
     Indication: Colorectal cancer metastatic
     Dosage: 80 MG, QD (DAYS 1-21 OF EACH 28 DAY CYCLE)
     Route: 048
     Dates: start: 20250818, end: 202508
  2. ALBUTEROL SULFATE [Concomitant]
     Active Substance: ALBUTEROL SULFATE
  3. BACTRIM DS [Concomitant]
     Active Substance: SULFAMETHOXAZOLE\TRIMETHOPRIM
  4. COLACE [Concomitant]
     Active Substance: DOCUSATE SODIUM
  5. LEVOFLOXACIN [Concomitant]
     Active Substance: LEVOFLOXACIN
  6. LORAZEPAM [Concomitant]
     Active Substance: LORAZEPAM
  7. MAGNESIUM [Concomitant]
     Active Substance: MAGNESIUM
  8. METHADONE [Concomitant]
     Active Substance: METHADONE HYDROCHLORIDE
  9. NALOXONE [Concomitant]
     Active Substance: NALOXONE
  10. NYSTATIN [Concomitant]
     Active Substance: NYSTATIN
  11. Oramagicrx [Concomitant]
     Route: 048
  12. PANTOPRAZOLE SODIUM [Concomitant]
     Active Substance: PANTOPRAZOLE SODIUM
  13. PROCHLORPERAZINE [Concomitant]
     Active Substance: PROCHLORPERAZINE
  14. SENNA [Concomitant]
     Active Substance: SENNOSIDES
  15. SYMBICORT [Concomitant]
     Active Substance: BUDESONIDE\FORMOTEROL FUMARATE DIHYDRATE
  16. TAMSULOSIN [Concomitant]
     Active Substance: TAMSULOSIN

REACTIONS (4)
  - Fall [Not Recovered/Not Resolved]
  - Asthenia [Not Recovered/Not Resolved]
  - Product use issue [None]
  - Fatigue [Not Recovered/Not Resolved]

NARRATIVE: CASE EVENT DATE: 20250801
